FAERS Safety Report 5852950-7 (Version None)
Quarter: 2008Q3

REPORT INFORMATION
  Report Type: 
  Country: None (occurrence: None)
  Receive Date: 20080814
  Receipt Date: 20080528
  Transmission Date: 20090109
  Serious: No
  Sender: FDA-Public Use
  Company Number: WAES 0804USA00168

PATIENT
  Age: 18 Year
  Sex: Female
  Weight: 55.7924 kg

DRUGS (2)
  1. ISENTRESS [Suspect]
  2. [THERAPY UNSPECIFIED] [Concomitant]

REACTIONS (1)
  - NAUSEA [None]
